FAERS Safety Report 9745287 (Version 1)
Quarter: 2013Q4

REPORT INFORMATION
  Report Type: Report from Study
  Country: CA (occurrence: CA)
  Receive Date: 20131211
  Receipt Date: 20131211
  Transmission Date: 20140711
  Serious: Yes (Other)
  Sender: FDA-Public Use
  Company Number: CA-JNJFOC-20131204348

PATIENT
  Age: 40 Year
  Sex: Male
  Weight: 125.4 kg

DRUGS (6)
  1. REMICADE [Suspect]
     Indication: ANKYLOSING SPONDYLITIS
     Dosage: 29TH INFUSION
     Route: 042
     Dates: start: 20131008
  2. REMICADE [Suspect]
     Indication: ANKYLOSING SPONDYLITIS
     Route: 042
     Dates: start: 20090919
  3. NEXIUM [Concomitant]
     Route: 065
  4. PREDFORTE EYE DROPS [Concomitant]
     Route: 047
  5. COVERSYL [Concomitant]
     Route: 065
  6. CIPRALEX [Concomitant]
     Route: 065

REACTIONS (1)
  - Melanocytic naevus [Recovered/Resolved]
